FAERS Safety Report 15612469 (Version 1)
Quarter: 2018Q4

REPORT INFORMATION
  Report Type: Spontaneous
  Country: US (occurrence: US)
  Receive Date: 20181113
  Receipt Date: 20181113
  Transmission Date: 20190205
  Serious: Yes (Hospitalization, Other)
  Sender: FDA-Public Use
  Company Number: US-DSJP-DSU-2017-140733

PATIENT

DRUGS (2)
  1. BENICAR [Suspect]
     Active Substance: OLMESARTAN MEDOXOMIL
     Indication: PRODUCT USED FOR UNKNOWN INDICATION
     Dosage: 20 MG, UNK
     Dates: start: 20030101, end: 20150701
  2. BENICAR [Suspect]
     Active Substance: OLMESARTAN MEDOXOMIL
     Dosage: 40 MG, QD
     Route: 048
     Dates: start: 20030101, end: 20150413

REACTIONS (7)
  - Cholecystitis chronic [Recovered/Resolved]
  - Acute kidney injury [Unknown]
  - Dysphagia [Unknown]
  - Irritable bowel syndrome [Unknown]
  - Diverticulum intestinal [Unknown]
  - Sprue-like enteropathy [Recovering/Resolving]
  - Umbilical hernia [Recovered/Resolved]

NARRATIVE: CASE EVENT DATE: 20030201
